FAERS Safety Report 8056587-3 (Version None)
Quarter: 2012Q1

REPORT INFORMATION
  Report Type: 
  Country: None (occurrence: None)
  Receive Date: 20120119
  Receipt Date: 20110809
  Transmission Date: 20120608
  Serious: Yes (Death, Life-Threatening)
  Sender: FDA-Public Use
  Company Number: PHHY2011JP72136

PATIENT
  Age: 66 Year
  Sex: Male

DRUGS (2)
  1. VINORELBINE [Suspect]
     Indication: MESOTHELIOMA
     Dosage: UNK UKN, UNK
  2. GEMCITABINE [Suspect]
     Indication: MESOTHELIOMA
     Dosage: UNK UKN, UNK

REACTIONS (2)
  - DEATH [None]
  - INTERSTITIAL LUNG DISEASE [None]
